FAERS Safety Report 12177506 (Version 4)
Quarter: 2016Q3

REPORT INFORMATION
  Report Type: Spontaneous
  Country: JP (occurrence: JP)
  Receive Date: 20160315
  Receipt Date: 20160813
  Transmission Date: 20161109
  Serious: Yes (Hospitalization, Other)
  Sender: FDA-Public Use
  Company Number: JP-AMGEN-JPNSP2016032065

PATIENT
  Age: 83 Year
  Sex: Male
  Weight: 46 kg

DRUGS (10)
  1. OXALIPLATIN. [Concomitant]
     Active Substance: OXALIPLATIN
     Indication: COLON CANCER
     Dosage: 125 MG, Q2WK
     Route: 041
     Dates: start: 20160102, end: 20160216
  2. MINOMYCIN [Concomitant]
     Active Substance: MINOCYCLINE HYDROCHLORIDE
     Indication: PROPHYLAXIS
     Dosage: 100 MG, BID
     Route: 048
     Dates: start: 20160202, end: 20160216
  3. CHLOR-TRIMETON [Concomitant]
     Active Substance: CHLORPHENIRAMINE MALEATE
     Dosage: 1 DF, UNK
     Route: 050
     Dates: start: 20160202, end: 20160216
  4. 5-FU                               /00098801/ [Concomitant]
     Active Substance: FLUOROURACIL
     Dosage: 3600 MG, Q2WK
     Route: 041
     Dates: start: 20160202, end: 20160216
  5. ALLEGRA [Concomitant]
     Active Substance: FEXOFENADINE HYDROCHLORIDE
     Indication: RHINITIS
     Dosage: 60 MG, BID
     Route: 048
     Dates: end: 20160223
  6. CALCIUM LEVOFOLINATE [Concomitant]
     Active Substance: LEVOLEUCOVORIN CALCIUM
     Indication: COLON CANCER
     Dosage: 300 MG, Q2WEEKS
     Route: 041
     Dates: start: 20160202, end: 20160216
  7. VECTIBIX [Suspect]
     Active Substance: PANITUMUMAB
     Indication: COLON CANCER
     Dosage: 300 MG, Q2WK
     Route: 041
     Dates: start: 20160202, end: 20160216
  8. MIYA-BM [Concomitant]
     Active Substance: CLOSTRIDIUM BUTYRICUM SPORES STRAIN M-55
     Indication: GASTROINTESTINAL DISORDER
     Dosage: 1 G, TID
     Route: 048
     Dates: end: 20160223
  9. 5-FU                               /00098801/ [Concomitant]
     Active Substance: FLUOROURACIL
     Indication: COLON CANCER
     Dosage: 600 MG, Q2WK
     Route: 040
     Dates: start: 20160202, end: 20160216
  10. GRANISETRON                        /01178102/ [Concomitant]
     Active Substance: GRANISETRON
     Dosage: 1 DF, Q2WEEKS
     Route: 041
     Dates: start: 20160202, end: 20160216

REACTIONS (7)
  - Neutrophil count decreased [Recovered/Resolved]
  - Febrile neutropenia [Recovered/Resolved]
  - Renal impairment [Unknown]
  - Haematuria [Recovered/Resolved]
  - Stomatitis [Recovering/Resolving]
  - Dehydration [Unknown]
  - Stevens-Johnson syndrome [Recovered/Resolved]

NARRATIVE: CASE EVENT DATE: 20160218
